FAERS Safety Report 7940697-2 (Version None)
Quarter: 2011Q4

REPORT INFORMATION
  Report Type: 
  Country: None (occurrence: None)
  Receive Date: 20111128
  Receipt Date: 20111118
  Transmission Date: 20120403
  Serious: Yes (Other)
  Sender: FDA-Public Use
  Company Number: US-JNJFOC-20111109044

PATIENT
  Sex: Female
  Weight: 61.24 kg

DRUGS (16)
  1. FENTANYL-100 [Suspect]
     Route: 062
     Dates: start: 20100101, end: 20100101
  2. LIDODERM [Concomitant]
     Indication: POST HERPETIC NEURALGIA
     Route: 062
     Dates: start: 20100101, end: 20100101
  3. AMITRIPTYLINE HCL [Concomitant]
     Indication: DEMENTIA
     Route: 048
  4. NADOLOL [Concomitant]
     Indication: PRODUCT USED FOR UNKNOWN INDICATION
     Route: 048
  5. FENTANYL-100 [Suspect]
     Indication: POST HERPETIC NEURALGIA
     Route: 062
     Dates: start: 20110924
  6. AMITRIPTYLINE HCL [Concomitant]
     Indication: SLEEP DISORDER
     Route: 048
  7. PLAVIX [Concomitant]
     Indication: CEREBROVASCULAR ACCIDENT PROPHYLAXIS
     Route: 048
  8. ISOSORB [Concomitant]
     Indication: PRODUCT USED FOR UNKNOWN INDICATION
     Route: 048
  9. OXYCODONE HCL [Suspect]
     Indication: POST HERPETIC NEURALGIA
     Route: 048
     Dates: start: 20100101, end: 20100101
  10. NAMENDA [Concomitant]
     Indication: AMNESIA
     Route: 048
  11. FENTANYL-100 [Suspect]
     Indication: POST HERPETIC NEURALGIA
     Route: 062
     Dates: start: 20100101, end: 20100101
  12. VICODIN [Suspect]
     Indication: POST HERPETIC NEURALGIA
     Route: 048
     Dates: start: 20100101, end: 20100101
  13. PERCOCET [Suspect]
     Indication: POST HERPETIC NEURALGIA
     Route: 048
     Dates: start: 20100101, end: 20100101
  14. CHLORTHALIDONE [Concomitant]
     Indication: PRODUCT USED FOR UNKNOWN INDICATION
     Route: 048
  15. POTASSIUM CHLORIDE [Concomitant]
     Indication: PRODUCT USED FOR UNKNOWN INDICATION
     Route: 048
  16. CRESTOR [Concomitant]
     Indication: PRODUCT USED FOR UNKNOWN INDICATION
     Route: 048

REACTIONS (4)
  - DRUG INEFFECTIVE [None]
  - THERAPEUTIC RESPONSE INCREASED [None]
  - INCORRECT DRUG ADMINISTRATION DURATION [None]
  - DEMENTIA [None]
